FAERS Safety Report 4899284-5 (Version None)
Quarter: 2006Q1

REPORT INFORMATION
  Report Type: 
  Country: None (occurrence: None)
  Receive Date: 20060131
  Receipt Date: 20060117
  Transmission Date: 20060701
  Serious: No
  Sender: FDA-Public Use
  Company Number: 02100-JPN-06-0012

PATIENT
  Age: 70 Year

DRUGS (2)
  1. CILOSTAZOL [Suspect]
     Indication: TRANSIENT ISCHAEMIC ATTACK
     Dosage: ORAL
     Route: 048
     Dates: start: 20051101, end: 20051101
  2. AMLODIPINE BESYLATE [Concomitant]

REACTIONS (7)
  - ATRIOVENTRICULAR BLOCK FIRST DEGREE [None]
  - BRADYCARDIA [None]
  - CIRCULATORY COLLAPSE [None]
  - DEPRESSED LEVEL OF CONSCIOUSNESS [None]
  - HYPOTENSION [None]
  - SOMNOLENCE [None]
  - VASODILATATION [None]
